FAERS Safety Report 12828310 (Version 1)
Quarter: 2016Q4

REPORT INFORMATION
  Report Type: Spontaneous
  Country: US (occurrence: US)
  Receive Date: 20161007
  Receipt Date: 20161007
  Transmission Date: 20170207
  Serious: Yes (Other)
  Sender: FDA-Public Use
  Company Number: US-BAYER-2016-190493

PATIENT
  Sex: Female
  Weight: 65.76 kg

DRUGS (1)
  1. ALEVE [Suspect]
     Active Substance: NAPROXEN SODIUM
     Indication: ARTHRALGIA
     Dosage: 2 DF, QD, IN THE MORNING
     Route: 048

REACTIONS (2)
  - Abdominal discomfort [Recovered/Resolved]
  - Gastric ulcer haemorrhage [None]
